FAERS Safety Report 9524049 (Version 1)
Quarter: 2013Q3

REPORT INFORMATION
  Report Type: Spontaneous
  Country: GB (occurrence: None)
  Receive Date: 20130912
  Receipt Date: 20130912
  Transmission Date: 20140515
  Serious: Yes (Hospitalization, Disabling, Other)
  Sender: FDA-Public Use
  Company Number: FK201304154

PATIENT
  Age: 60 Year
  Sex: Female

DRUGS (15)
  1. LETROZOLE [Suspect]
     Indication: BREAST CANCER
  2. BUMETANIDE [Concomitant]
  3. CITALOPRAM (CITALOPRAM) [Concomitant]
  4. CO-DANTHRAMER (DORBANEX /00161701/) [Concomitant]
  5. CYCLIZINE (CYCLIZINE) [Concomitant]
  6. FERROUS FUMARATE (FERROUS FUMARATE) [Concomitant]
  7. GLICLAZIDE (GLICLAZIDE) [Concomitant]
  8. LEVEMIR (INSULIN DETEMIR) [Concomitant]
  9. LISINOPRIL (LISINOPRIL) [Concomitant]
  10. METFORMIN (METFORMIN) [Concomitant]
  11. MEZOLAR MATRIX (GLYCERYL TRINITRATE) [Concomitant]
  12. OMEPRAZOLE (OMEPRAZOLE) [Concomitant]
  13. SEVREDOL (MORPHINE SULFATE) [Concomitant]
  14. TRAMADOL (TRAMADOL) [Concomitant]
  15. ZOPICLONE (ZOPICLONE) [Concomitant]

REACTIONS (2)
  - Mania [None]
  - Psychotic disorder [None]
